FAERS Safety Report 19940942 (Version 1)
Quarter: 2021Q4

REPORT INFORMATION
  Report Type: Spontaneous
  Country: CN (occurrence: CN)
  Receive Date: 20211011
  Receipt Date: 20211011
  Transmission Date: 20220303
  Serious: Yes (Hospitalization)
  Sender: FDA-Public Use
  Company Number: CN-ELI_LILLY_AND_COMPANY-CN202109011987

PATIENT
  Sex: Male

DRUGS (4)
  1. HUMALOG MIX75/25 [Suspect]
     Active Substance: INSULIN LISPRO
     Indication: Blood glucose increased
     Dosage: 10 U, BID
     Route: 058
     Dates: start: 20210908, end: 20210913
  2. HUMALOG MIX75/25 [Suspect]
     Active Substance: INSULIN LISPRO
     Dosage: 20 U, EACH MORNING
     Route: 058
  3. HUMALOG MIX75/25 [Suspect]
     Active Substance: INSULIN LISPRO
     Dosage: 10 U, NIGHT
     Route: 058
  4. ACARBOSE [Concomitant]
     Active Substance: ACARBOSE
     Indication: Blood glucose increased
     Dosage: 50 MG, TID
     Route: 048

REACTIONS (2)
  - Diabetes mellitus inadequate control [Recovering/Resolving]
  - Hypoglycaemia [Recovering/Resolving]
